FAERS Safety Report 10669691 (Version 2)
Quarter: 2014Q4

REPORT INFORMATION
  Report Type: Spontaneous
  Country: JP (occurrence: JP)
  Receive Date: 20141222
  Receipt Date: 20141222
  Transmission Date: 20150529
  Serious: Yes (Other)
  Sender: FDA-Public Use
  Company Number: JP-GLAXOSMITHKLINE-B0718172A

PATIENT
  Age: 70 Year
  Sex: Female

DRUGS (4)
  1. MELPHALAN [Suspect]
     Active Substance: MELPHALAN
     Indication: PLASMA CELL MYELOMA
     Route: 042
  2. PREDNISOLONE. [Suspect]
     Active Substance: PREDNISOLONE
     Route: 065
  3. DEXAMETHASONE. [Suspect]
     Active Substance: DEXAMETHASONE
  4. THALIDOMIDE [Suspect]
     Active Substance: THALIDOMIDE
     Route: 048

REACTIONS (2)
  - Hepatitis B DNA increased [Recovered/Resolved]
  - Hepatitis B [Unknown]
